FAERS Safety Report 8152765-3 (Version None)
Quarter: 2012Q1

REPORT INFORMATION
  Report Type: 
  Country: None (occurrence: None)
  Receive Date: 20120221
  Receipt Date: 20120213
  Transmission Date: 20120608
  Serious: Yes (Other)
  Sender: FDA-Public Use
  Company Number: US-BAYER-2012-014775

PATIENT

DRUGS (3)
  1. TIKOSYN [Concomitant]
     Dosage: 250 MCG/24HR, UNK
     Dates: start: 20090101
  2. AVELOX [Suspect]
     Indication: PNEUMONIA BACTERIAL
     Dosage: UNK
     Dates: start: 20120101
  3. TIKOSYN [Concomitant]
     Dosage: 125 MCG/24HR, UNK
     Dates: start: 20120101

REACTIONS (1)
  - ELECTROCARDIOGRAM QT PROLONGED [None]
